FAERS Safety Report 9341044 (Version 2)
Quarter: 2013Q2

REPORT INFORMATION
  Report Type: Spontaneous
  Country: US (occurrence: US)
  Receive Date: 20130610
  Receipt Date: 20130620
  Transmission Date: 20140414
  Serious: No
  Sender: FDA-Public Use
  Company Number: US-PFIZER INC-2013172974

PATIENT
  Sex: Male

DRUGS (3)
  1. LIPITOR [Suspect]
     Dosage: 10 MG, UNK
  2. CARDURA [Suspect]
     Dosage: 4 MG, UNK
  3. CELEBREX [Suspect]
     Dosage: 200 MG, UNK

REACTIONS (1)
  - Burning sensation [Unknown]
